FAERS Safety Report 4453583-X (Version None)
Quarter: 2004Q3

REPORT INFORMATION
  Report Type: 
  Country: None (occurrence: None)
  Receive Date: 20040920
  Receipt Date: 20030807
  Transmission Date: 20050211
  Serious: Yes (Hospitalization)
  Sender: FDA-Public Use
  Company Number: PHHO2003FR10068

PATIENT
  Age: 55 Year
  Sex: Female
  Weight: 47 kg

DRUGS (2)
  1. FTY720 VS MYCOPHENOLATE MOFETIL [Suspect]
     Indication: RENAL TRANSPLANT
     Dosage: CODE NOT BROKEN
     Route: 048
     Dates: start: 20030620
  2. NEORAL [Suspect]
     Indication: RENAL TRANSPLANT
     Dosage: 500 MG, DAILY
     Route: 048
     Dates: start: 20030620

REACTIONS (6)
  - CARDIAC FAILURE ACUTE [None]
  - COMPLICATIONS OF TRANSPLANTED KIDNEY [None]
  - FLUID OVERLOAD [None]
  - HYPOTENSION [None]
  - KIDNEY TRANSPLANT REJECTION [None]
  - RENAL FAILURE [None]
